FAERS Safety Report 6864083-1 (Version None)
Quarter: 2010Q3

REPORT INFORMATION
  Report Type: 
  Country: None (occurrence: None)
  Receive Date: 20100720
  Receipt Date: 20100712
  Transmission Date: 20110219
  Serious: Yes (Hospitalization)
  Sender: FDA-Public Use
  Company Number: DSA_43453_2010

PATIENT
  Age: 17 Year
  Sex: Male

DRUGS (1)
  1. WELLBUTRIN XL [Suspect]
     Indication: MAJOR DEPRESSION
     Dosage: 2100 MG 1X, NOT THE PRESCRIBED AMOUNT ORAL, 150 MG ORAL
     Route: 048

REACTIONS (8)
  - ABDOMINAL DISCOMFORT [None]
  - CONFUSIONAL STATE [None]
  - FORMICATION [None]
  - GRAND MAL CONVULSION [None]
  - HALLUCINATION, TACTILE [None]
  - HALLUCINATION, VISUAL [None]
  - HEART RATE INCREASED [None]
  - OVERDOSE [None]
